FAERS Safety Report 13522217 (Version 2)
Quarter: 2017Q2

REPORT INFORMATION
  Report Type: Spontaneous
  Country: DK (occurrence: DK)
  Receive Date: 20170508
  Receipt Date: 20170517
  Transmission Date: 20170830
  Serious: Yes (Death, Other)
  Sender: FDA-Public Use
  Company Number: DK-GLAXOSMITHKLINE-DK2017GSK066588

PATIENT
  Age: 62 Year
  Sex: Female

DRUGS (9)
  1. VOLTAREN [Suspect]
     Active Substance: DICLOFENAC SODIUM
     Indication: PAIN
     Dosage: UNK
     Dates: end: 20130205
  2. PANAM RETARD [Concomitant]
     Active Substance: ACETAMINOPHEN
  3. MERONEM [Concomitant]
     Active Substance: MEROPENEM
     Dosage: UNK
     Dates: start: 20090225
  4. METHOTREXATE (METHOTREXATE SODIUM) [Concomitant]
     Active Substance: METHOTREXATE SODIUM
     Dosage: UNK
     Dates: start: 2007
  5. PREDNISOLON [Concomitant]
     Active Substance: PREDNISOLONE
     Dosage: UNK
     Dates: start: 20071206
  6. ENBREL [Concomitant]
     Active Substance: ETANERCEPT
     Dosage: UNK
     Dates: start: 20081204
  7. MANDOLGIN [Concomitant]
     Active Substance: TRAMADOL
  8. OXYNORM [Concomitant]
     Active Substance: OXYCODONE HYDROCHLORIDE
  9. CONTALGIN [Concomitant]
     Active Substance: MORPHINE SULFATE

REACTIONS (2)
  - Gastric ulcer haemorrhage [Fatal]
  - Injury [Unknown]

NARRATIVE: CASE EVENT DATE: 20130213
